FAERS Safety Report 19144753 (Version 1)
Quarter: 2021Q2

REPORT INFORMATION
  Report Type: Spontaneous
  Country: US (occurrence: US)
  Receive Date: 20210416
  Receipt Date: 20210416
  Transmission Date: 20210717
  Serious: Yes (Hospitalization)
  Sender: FDA-Public Use
  Company Number: None

PATIENT
  Age: 65 Year
  Sex: Male
  Weight: 105.7 kg

DRUGS (2)
  1. CYTARABINE. [Suspect]
     Active Substance: CYTARABINE
     Dates: end: 20201216
  2. DAUNORUBICIN [Suspect]
     Active Substance: DAUNORUBICIN
     Dates: end: 20201209

REACTIONS (12)
  - Neutrophil count decreased [None]
  - Pyrexia [None]
  - Catheter culture positive [None]
  - Retroperitoneal haemorrhage [None]
  - Pancreatic pseudocyst [None]
  - Hypotension [None]
  - Infusion site extravasation [None]
  - Shock haemorrhagic [None]
  - Haemoglobin decreased [None]
  - Duodenal perforation [None]
  - Obstruction gastric [None]
  - Condition aggravated [None]

NARRATIVE: CASE EVENT DATE: 20201216
